FAERS Safety Report 19275062 (Version 2)
Quarter: 2021Q3

REPORT INFORMATION
  Report Type: Report from Study
  Country: JP (occurrence: JP)
  Receive Date: 20210519
  Receipt Date: 20210707
  Transmission Date: 20211014
  Serious: Yes (Hospitalization)
  Sender: FDA-Public Use
  Company Number: JP-ROCHE-2830200

PATIENT
  Age: 56 Year
  Sex: Female
  Weight: 51.2 kg

DRUGS (4)
  1. ZOLPIDEM [Concomitant]
     Active Substance: ZOLPIDEM TARTRATE
     Indication: INSOMNIA
     Dosage: 5 MILLIGRAM, PRN
     Route: 048
     Dates: start: 201908
  2. ATEZOLIZUMAB. [Suspect]
     Active Substance: ATEZOLIZUMAB
     Indication: OVARIAN CANCER
     Dosage: 1200 MILLIGRAM, ONCE/3WEEKS
     Route: 041
     Dates: start: 20210322, end: 20210412
  3. MAGNESIUM OXIDE. [Concomitant]
     Active Substance: MAGNESIUM OXIDE
     Indication: CONSTIPATION
     Dosage: UNK, PRN
     Route: 048
     Dates: start: 20210212
  4. HIRUDOID [Concomitant]
     Active Substance: GLYCOSAMINOGLYCANS
     Indication: DRY SKIN
     Dosage: APPROPRIATE AMOUNT, PRN
     Route: 003
     Dates: start: 202011

REACTIONS (1)
  - Facial paralysis [Recovering/Resolving]

NARRATIVE: CASE EVENT DATE: 20210430
